FAERS Safety Report 9112858 (Version 1)
Quarter: 2013Q1

REPORT INFORMATION
  Report Type: Spontaneous
  Country: US (occurrence: US)
  Receive Date: 20130211
  Receipt Date: 20130211
  Transmission Date: 20140127
  Serious: No
  Sender: FDA-Public Use
  Company Number: US-PFIZER INC-2013047190

PATIENT
  Age: 73 Year
  Sex: Female

DRUGS (13)
  1. DOXYCYCLINE HYCLATE [Suspect]
     Dosage: UNK
  2. AUGMENTIN [Suspect]
     Dosage: UNK
  3. STADOL [Suspect]
  4. DURICEF [Suspect]
  5. TALWIN [Suspect]
  6. NALBUPHINE HYDROCHLORIDE [Suspect]
  7. NORGESIC [Suspect]
  8. BIAXIN [Suspect]
  9. CEFTIN [Suspect]
  10. CEDAX [Suspect]
  11. SPARINE [Suspect]
  12. CECLOR [Suspect]
  13. EES [Suspect]

REACTIONS (1)
  - Drug hypersensitivity [Unknown]
